FAERS Safety Report 25494255 (Version 1)
Quarter: 2025Q2

REPORT INFORMATION
  Report Type: Report from Study
  Country: CN (occurrence: CN)
  Receive Date: 20250630
  Receipt Date: 20250630
  Transmission Date: 20250716
  Serious: Yes (Other)
  Sender: ROCHE
  Company Number: CN-ROCHE-10000320707

PATIENT
  Sex: Female

DRUGS (3)
  1. ADO-TRASTUZUMAB EMTANSINE [Suspect]
     Active Substance: ADO-TRASTUZUMAB EMTANSINE
     Indication: Breast cancer
     Route: 065
  2. TRASTUZUMAB [Suspect]
     Active Substance: TRASTUZUMAB
     Indication: Breast cancer
     Route: 065
  3. PERTUZUMAB [Suspect]
     Active Substance: PERTUZUMAB
     Indication: Breast cancer
     Route: 065

REACTIONS (11)
  - Platelet count decreased [Unknown]
  - Asthenia [Unknown]
  - Dry mouth [Unknown]
  - Vomiting [Unknown]
  - Epistaxis [Unknown]
  - Myalgia [Unknown]
  - Neuropathy peripheral [Unknown]
  - Insomnia [Unknown]
  - Headache [Unknown]
  - Pyrexia [Unknown]
  - Dyspnoea [Unknown]
